FAERS Safety Report 8041091-9 (Version None)
Quarter: 2012Q1

REPORT INFORMATION
  Report Type: 
  Country: None (occurrence: None)
  Receive Date: 20120109
  Receipt Date: 20111223
  Transmission Date: 20120608
  Serious: Yes (Death)
  Sender: FDA-Public Use
  Company Number: FK201103119

PATIENT
  Age: 3 Year
  Sex: Male
  Weight: 15.9 kg

DRUGS (15)
  1. ITRACONAZOLE (ITRACONAZOLE) (ITRACONAZOLE) [Concomitant]
  2. PHENYTOIN [Concomitant]
  3. LANSOPRAZOLE [Concomitant]
  4. CYCLOSPORINE [Concomitant]
  5. METHOTREXATE [Suspect]
     Indication: GRAFT VERSUS HOST DISEASE
     Dosage: 13.6 MG, TOTAL
     Dates: start: 20110116, end: 20110119
  6. CYCLOPHOSPHAMIDE [Suspect]
     Indication: BONE MARROW FAILURE
     Dosage: 3180 MG, TOTAL, INTRAVENOUS (NOT OTHERWISE SPECIFIED)
     Route: 042
     Dates: start: 20110107, end: 20110110
  7. MESNA (MESNA) (MESNA) [Concomitant]
  8. ACYCLOVIR [Concomitant]
  9. ALEMTUZUMAB (ALEMTUZUMAB) (ALEMTUZUMAB) [Concomitant]
  10. ONDANSETRON [Concomitant]
  11. VITAMIN K (VITAMIN K NOS) (VITAMIN K NOS) [Concomitant]
  12. ALLOPURINOL [Concomitant]
  13. CIPROFLOXACIN [Concomitant]
  14. PENTAMIDINE (PENTAMIDINE) (PENTAMIDINE) [Concomitant]
  15. THIOTEPA [Concomitant]

REACTIONS (1)
  - VENOOCCLUSIVE LIVER DISEASE [None]
